FAERS Safety Report 12714028 (Version 16)
Quarter: 2017Q2

REPORT INFORMATION
  Report Type: Spontaneous
  Country: JP (occurrence: JP)
  Receive Date: 20160905
  Receipt Date: 20170606
  Transmission Date: 20170830
  Serious: Yes (Other)
  Sender: FDA-Public Use
  Company Number: JP-PFIZER INC-2016347124

PATIENT
  Sex: Male

DRUGS (2)
  1. SUTENT [Suspect]
     Active Substance: SUNITINIB MALATE
     Indication: METASTATIC RENAL CELL CARCINOMA
     Dosage: 50 MG, CYCLIC (2 WEEKS ON AND 2 WEEKS OFF)
     Route: 048
     Dates: start: 20160606
  2. URSO [Concomitant]
     Active Substance: URSODIOL
     Dosage: UNK

REACTIONS (21)
  - Hair colour changes [Unknown]
  - White blood cell count decreased [Recovering/Resolving]
  - Proctalgia [Unknown]
  - Skin discolouration [Unknown]
  - Bone marrow failure [Recovering/Resolving]
  - Palmar-plantar erythrodysaesthesia syndrome [Not Recovered/Not Resolved]
  - Back pain [Unknown]
  - Hypertension [Recovering/Resolving]
  - Eyelid oedema [Unknown]
  - Haemorrhage subcutaneous [Recovering/Resolving]
  - Liver function test increased [Recovered/Resolved]
  - Dysphonia [Unknown]
  - Oral discomfort [Recovering/Resolving]
  - Platelet count decreased [Recovered/Resolved]
  - Nail discolouration [Unknown]
  - Diarrhoea [Unknown]
  - Hyperkeratosis [Unknown]
  - Dysgeusia [Unknown]
  - Blood lactate dehydrogenase decreased [Unknown]
  - Contusion [Unknown]
  - Neoplasm progression [Unknown]

NARRATIVE: CASE EVENT DATE: 2016
